FAERS Safety Report 25746473 (Version 1)
Quarter: 2025Q3

REPORT INFORMATION
  Report Type: Spontaneous
  Country: GB (occurrence: GB)
  Receive Date: 20250901
  Receipt Date: 20250901
  Transmission Date: 20251021
  Serious: Yes (Other)
  Sender: TORRENT PHARMA INC.
  Company Number: None

PATIENT
  Age: 59 Year
  Sex: Female
  Weight: 12 kg

DRUGS (1)
  1. APIXABAN [Suspect]
     Active Substance: APIXABAN
     Indication: Hip arthroplasty
     Dosage: 2.5MG TWICE DAILY
     Route: 065
     Dates: start: 20250625, end: 20250709

REACTIONS (4)
  - Pruritus [Recovered/Resolved]
  - Rash [Unknown]
  - Inflammation [Unknown]
  - Haemorrhage [Unknown]

NARRATIVE: CASE EVENT DATE: 20250702
